FAERS Safety Report 8410833 (Version 2)
Quarter: 2013Q2

REPORT INFORMATION
  Report Type: Spontaneous
  Country: US (occurrence: None)
  Receive Date: 20111227
  Receipt Date: 20120703
  Transmission Date: 20140414
  Serious: Yes (Other)
  Sender: FDA-Public Use
  Company Number: PHEH2011US04227

PATIENT
  Sex: Female
  Weight: 70.3 kg

DRUGS (14)
  1. GILENYA [Suspect]
     Indication: MULTIPLE SCLEROSIS
     Dosage: 0.5 MG, QD, ORAL
     Route: 048
     Dates: start: 20110520
  2. MESALAMINE (MESALAZINE) [Concomitant]
  3. IBUPROFEN [Concomitant]
  4. CLARITIN (LORATADINE) [Concomitant]
  5. MELOXICAM [Concomitant]
  6. VITAMIN D (ERGOCALCIFEROL) [Concomitant]
  7. CALCIUM D3 ^STADA^ (CALCIUM, COLECALCIFEROL) [Concomitant]
  8. VITAMIN B12 (CYANOCOBALAMIN) [Concomitant]
  9. VITAMIN C (ASCORBIC ACID) [Concomitant]
  10. VITAMIN E (TOCOPHEROL) [Concomitant]
  11. HYDROXYCUT MAX [Concomitant]
  12. MELATONIN [Concomitant]
  13. LACTULOSE [Concomitant]
  14. NASAL SPRAY (OXYMETAZOLINE HYDROCHLORIDE) [Concomitant]

REACTIONS (5)
  - VISUAL IMPAIRMENT [None]
  - Eye movement disorder [None]
  - Fatigue [None]
  - Blood pressure decreased [None]
  - Rash [None]
